FAERS Safety Report 4512855-0 (Version None)
Quarter: 2004Q4

REPORT INFORMATION
  Report Type: 
  Country: None (occurrence: None)
  Receive Date: 20041119
  Receipt Date: 20041119
  Transmission Date: 20050328
  Serious: Yes (Other)
  Sender: FDA-Public Use
  Company Number: None

PATIENT

DRUGS (2)
  1. LEVOTHYROXINE SODIUM [Suspect]
     Indication: HYPOTENSION
     Dosage: 125 MCG PO
     Route: 048
  2. MAXZIDE [Concomitant]

REACTIONS (4)
  - ALOPECIA [None]
  - CANDIDIASIS [None]
  - DRUG INEFFECTIVE [None]
  - EYE SWELLING [None]
